FAERS Safety Report 10084255 (Version 2)
Quarter: 2014Q2

REPORT INFORMATION
  Report Type: Spontaneous
  Country: HU (occurrence: HU)
  Receive Date: 20140417
  Receipt Date: 20140425
  Transmission Date: 20141212
  Serious: Yes (Hospitalization, Other)
  Sender: FDA-Public Use
  Company Number: HU-ACTAVIS-2014-07325

PATIENT
  Age: 14 Year
  Sex: Male

DRUGS (4)
  1. CEFUROXIME (UNKNOWN) [Suspect]
     Indication: UPPER RESPIRATORY TRACT INFECTION
     Dosage: UNKNOWN
     Route: 065
  2. LAMOTRIGINE (UNKNOWN) [Suspect]
     Indication: PETIT MAL EPILEPSY
     Dosage: 100 MG, BID
     Route: 065
  3. LAMOTRIGINE (UNKNOWN) [Suspect]
     Dosage: 50 MG, DAILY
     Route: 065
  4. AMOXICILLIN-CLAVULANIC ACID (UNKNOWN) [Suspect]
     Indication: UPPER RESPIRATORY TRACT INFECTION
     Dosage: UNKNOWN
     Route: 065

REACTIONS (1)
  - Toxic epidermal necrolysis [Recovered/Resolved]
